FAERS Safety Report 8963710 (Version 2)
Quarter: 2014Q2

REPORT INFORMATION
  Report Type: Spontaneous
  Country: US (occurrence: US)
  Receive Date: 20121214
  Receipt Date: 20140407
  Transmission Date: 20141212
  Serious: Yes (Other)
  Sender: FDA-Public Use
  Company Number: US-BAYER-2012-130193

PATIENT
  Age: 18 Year
  Sex: Female

DRUGS (8)
  1. YAZ [Suspect]
     Indication: ACNE
     Dosage: UNK
     Dates: start: 200901
  2. FLUTICASONE [Concomitant]
     Dosage: 50 ?G,
     Dates: start: 20091007
  3. OMEPRAZOLE [Concomitant]
     Dosage: 20 MG, UNK
     Dates: start: 20091007
  4. AZITHROMAX [Concomitant]
     Dosage: 250 MG, UNK
     Dates: start: 20091007
  5. OXYCODONE/APAP [Concomitant]
     Dosage: 5/325 MG
     Dates: start: 20091007
  6. METRONIDAZOLE [Concomitant]
     Dosage: 500 M
     Dates: start: 20091014
  7. HYDROCODONE/ACETAMINOPHEN [Concomitant]
     Dosage: 7.5/5
     Dates: start: 20091014
  8. CEPHADYN [Concomitant]
     Dosage: UNK
     Dates: start: 20091014

REACTIONS (4)
  - Cholelithiasis [None]
  - Injury [None]
  - Pain [None]
  - Pain [None]
